FAERS Safety Report 11800496 (Version 1)
Quarter: 2015Q4

REPORT INFORMATION
  Report Type: Report from Study
  Country: IT (occurrence: IT)
  Receive Date: 20151203
  Receipt Date: 20151203
  Transmission Date: 20160305
  Serious: Yes (Other)
  Sender: FDA-Public Use
  Company Number: IT-ROCHE-1670033

PATIENT

DRUGS (4)
  1. OXALIPLATIN. [Suspect]
     Active Substance: OXALIPLATIN
     Indication: METASTASES TO LARGE INTESTINE
     Route: 065
  2. BEVACIZUMAB [Suspect]
     Active Substance: BEVACIZUMAB
     Indication: METASTASES TO LARGE INTESTINE
     Route: 065
  3. CETUXIMAB [Suspect]
     Active Substance: CETUXIMAB
     Indication: METASTASES TO LARGE INTESTINE
     Route: 065
  4. IRINOTECAN [Suspect]
     Active Substance: IRINOTECAN
     Indication: METASTASES TO LARGE INTESTINE
     Route: 065

REACTIONS (7)
  - Nodular regenerative hyperplasia [Unknown]
  - Hepatic fibrosis [Unknown]
  - Hepatic necrosis [Unknown]
  - Hepatic steatosis [Unknown]
  - Periportal sinus dilatation [Unknown]
  - Hepatic haemorrhage [Unknown]
  - Vascular purpura [Unknown]
